FAERS Safety Report 9144669 (Version 2)
Quarter: 2013Q1

REPORT INFORMATION
  Report Type: Spontaneous
  Country: US (occurrence: US)
  Receive Date: 20130306
  Receipt Date: 20130313
  Transmission Date: 20140127
  Serious: Yes (Hospitalization, Other)
  Sender: FDA-Public Use
  Company Number: CHPA2013US003588

PATIENT
  Age: 53 Year
  Sex: Male

DRUGS (2)
  1. VOLTAREN GEL [Suspect]
     Indication: KNEE ARTHROPLASTY
     Dosage: 2 G, QID
     Route: 061
     Dates: start: 201205, end: 20120611
  2. SIMVASTATIN [Concomitant]

REACTIONS (4)
  - Myocardial infarction [Recovered/Resolved]
  - Arterial occlusive disease [Recovered/Resolved]
  - Malaise [Recovered/Resolved]
  - Off label use [Unknown]
